FAERS Safety Report 8274294 (Version 3)
Quarter: 2013Q3

REPORT INFORMATION
  Report Type: Spontaneous
  Country: FR (occurrence: FR)
  Receive Date: 20111205
  Receipt Date: 20130918
  Transmission Date: 20140515
  Serious: Yes (Hospitalization, Other)
  Sender: FDA-Public Use
  Company Number: FR-ELI_LILLY_AND_COMPANY-FR201111006700

PATIENT
  Age: 60 Year
  Sex: Male
  Weight: 91 kg

DRUGS (11)
  1. PROZAC [Suspect]
     Indication: DEPRESSION
     Dosage: 1 DF, QD
     Route: 048
     Dates: end: 1996
  2. MEDIATOR [Concomitant]
     Indication: OVERWEIGHT
     Dosage: 450 MG, QD
     Dates: start: 200903, end: 20091130
  3. BIGUANIDE [Concomitant]
  4. HMG COA REDUCTASE INHIBITORS [Concomitant]
  5. BETA BLOCKING AGENTS [Concomitant]
  6. CALCIUM CHANNEL BLOCKERS [Concomitant]
  7. PLAVIX [Concomitant]
  8. SECTRAL [Concomitant]
     Dosage: 200 MG, UNKNOWN
  9. TAHOR [Concomitant]
     Dosage: 20 MG, UNKNOWN
  10. GLUCOPHAGE [Concomitant]
     Dosage: 500 MG, UNKNOWN
  11. INEXIUM [Concomitant]
     Dosage: 40 MG, UNK

REACTIONS (6)
  - Acute coronary syndrome [Unknown]
  - Aortic valve incompetence [Not Recovered/Not Resolved]
  - Mitral valve incompetence [Not Recovered/Not Resolved]
  - Dilatation ventricular [Unknown]
  - Left ventricular dysfunction [Unknown]
  - Dilatation atrial [Unknown]
